FAERS Safety Report 6697096-3 (Version None)
Quarter: 2010Q2

REPORT INFORMATION
  Report Type: 
  Country: None (occurrence: None)
  Receive Date: 20100426
  Receipt Date: 20100421
  Transmission Date: 20101027
  Serious: Yes (Life-Threatening, Hospitalization)
  Sender: FDA-Public Use
  Company Number: US-JNJFOC-20100405768

PATIENT
  Sex: Male

DRUGS (9)
  1. LEVAQUIN [Suspect]
     Indication: URINARY TRACT INFECTION
     Route: 065
  2. REVLIMID [Suspect]
     Indication: MULTIPLE MYELOMA
     Route: 048
  3. ZITHROMAX [Suspect]
     Indication: UPPER RESPIRATORY TRACT INFECTION
     Route: 048
  4. HYZAAR [Concomitant]
     Indication: DRUG USE FOR UNKNOWN INDICATION
     Route: 065
  5. OMEPRAZOLE [Concomitant]
     Indication: DRUG USE FOR UNKNOWN INDICATION
     Route: 065
  6. PRIMESIN [Concomitant]
     Indication: SEPSIS
     Route: 042
  7. VANCOMYCIN [Concomitant]
     Indication: SEPSIS
     Route: 042
  8. BLOOD AND RELATED PRODUCTS [Concomitant]
     Route: 042
  9. LASIX [Concomitant]
     Indication: POLYURIA
     Route: 065

REACTIONS (4)
  - ANAEMIA [None]
  - CARDIAC FAILURE CONGESTIVE [None]
  - HYPOTENSION [None]
  - TUBULOINTERSTITIAL NEPHRITIS [None]
